FAERS Safety Report 9200746 (Version 4)
Quarter: 2013Q2

REPORT INFORMATION
  Report Type: Spontaneous
  Country: AU (occurrence: AU)
  Receive Date: 20130401
  Receipt Date: 20130613
  Transmission Date: 20140414
  Serious: Yes (Other)
  Sender: FDA-Public Use
  Company Number: AU-009507513-1303AUS013652

PATIENT
  Age: 27 Year
  Sex: Female

DRUGS (1)
  1. IMPLANON [Suspect]
     Dosage: DOSE UNSPECIFIED
     Route: 059
     Dates: start: 200008, end: 200303

REACTIONS (3)
  - Abortion induced [Recovered/Resolved]
  - Unintended pregnancy [Unknown]
  - Drug ineffective [Unknown]
